FAERS Safety Report 23722757 (Version 1)
Quarter: 2024Q2

REPORT INFORMATION
  Report Type: Spontaneous
  Country: US (occurrence: None)
  Receive Date: 20240408
  Receipt Date: 20240408
  Transmission Date: 20240716
  Serious: Yes (Other)
  Sender: FDA-Public Use
  Company Number: None

PATIENT
  Age: 72 Year
  Sex: Female

DRUGS (2)
  1. LYNPARZA [Suspect]
     Active Substance: OLAPARIB
     Indication: Uterine cancer
     Dosage: OTHER QUANTITY : 2 T (300MG)?FREQUENCY : TWICE A DAY?
     Route: 048
     Dates: start: 20240329
  2. TRUQAP [Concomitant]
     Active Substance: CAPIVASERTIB

REACTIONS (3)
  - Fatigue [None]
  - Taste disorder [None]
  - Diarrhoea [None]

NARRATIVE: CASE EVENT DATE: 20240401
